FAERS Safety Report 9207971 (Version 3)
Quarter: 2015Q1

REPORT INFORMATION
  Report Type: Report from Study
  Country: US (occurrence: US)
  Receive Date: 20130403
  Receipt Date: 20150123
  Transmission Date: 20150721
  Serious: Yes (Other)
  Sender: FDA-Public Use
  Company Number: US-ALEXION-A201300060

PATIENT

DRUGS (2)
  1. SOLIRIS [Suspect]
     Active Substance: ECULIZUMAB
     Dosage: 900 MG, 12-14 DAYS
     Route: 042
     Dates: start: 200702, end: 201311
  2. SOLIRIS [Suspect]
     Active Substance: ECULIZUMAB
     Indication: PAROXYSMAL NOCTURNAL HAEMOGLOBINURIA
     Route: 042

REACTIONS (21)
  - Pyrexia [Unknown]
  - Splenic lesion [Unknown]
  - Blood immunoglobulin G decreased [Unknown]
  - Systemic lupus erythematosus [Unknown]
  - Dry mouth [Unknown]
  - Myalgia [Unknown]
  - Pain in extremity [Unknown]
  - Sarcoidosis [Unknown]
  - Pruritus [Unknown]
  - T-cell lymphoma [Unknown]
  - Antinuclear antibody increased [Unknown]
  - B-cell lymphoma [Unknown]
  - Erythema nodosum [Unknown]
  - Night sweats [Unknown]
  - Dry eye [Unknown]
  - Lymphadenopathy [Unknown]
  - Dyspnoea [Unknown]
  - Arthralgia [Unknown]
  - Splenomegaly [Unknown]
  - Fibrin D dimer increased [Unknown]
  - Fatigue [Unknown]
